FAERS Safety Report 9833554 (Version 1)
Quarter: 2014Q1

REPORT INFORMATION
  Report Type: Spontaneous
  Country: US (occurrence: US)
  Receive Date: 20140122
  Receipt Date: 20140122
  Transmission Date: 20141002
  Serious: Yes (Other)
  Sender: FDA-Public Use
  Company Number: US-AMGEN-USASP2014003031

PATIENT
  Age: 67 Year
  Sex: Female

DRUGS (2)
  1. PROLIA [Suspect]
     Indication: OSTEOPOROSIS POSTMENOPAUSAL
     Dosage: UNK
     Route: 065
     Dates: start: 201311
  2. VITAMIN D                          /00107901/ [Concomitant]
     Dosage: 50 THOUSAND LIQUID FOR 12 DAYS/2000MG
     Dates: start: 201311

REACTIONS (8)
  - Blood pressure increased [Unknown]
  - Drug interaction [Unknown]
  - Feeling hot [Unknown]
  - Mobility decreased [Unknown]
  - Panic attack [Unknown]
  - Joint crepitation [Unknown]
  - Chest discomfort [Unknown]
  - Erythema [Unknown]
